FAERS Safety Report 18545057 (Version 12)
Quarter: 2021Q4

REPORT INFORMATION
  Report Type: Report from Study
  Country: AU (occurrence: AU)
  Receive Date: 20201125
  Receipt Date: 20211124
  Transmission Date: 20220303
  Serious: Yes (Other)
  Sender: FDA-Public Use
  Company Number: AU-TAKEDA-AU202032177

PATIENT
  Sex: Male

DRUGS (5)
  1. AGALSIDASE ALFA [Suspect]
     Active Substance: AGALSIDASE ALFA
     Indication: Fabry^s disease
     Dosage: UNK
     Route: 042
     Dates: start: 20191202
  2. AGALSIDASE ALFA [Suspect]
     Active Substance: AGALSIDASE ALFA
     Dosage: 17.5 MILLIGRAM, Q2WEEKS
     Route: 042
     Dates: start: 20201015
  3. AGALSIDASE ALFA [Suspect]
     Active Substance: AGALSIDASE ALFA
     Dosage: UNK, Q2WEEKS
     Route: 042
  4. AGALSIDASE ALFA [Suspect]
     Active Substance: AGALSIDASE ALFA
     Dosage: 17.5 MILLIGRAM, Q2WEEKS
     Route: 042
  5. LISDEXAMFETAMINE DIMESYLATE [Suspect]
     Active Substance: LISDEXAMFETAMINE DIMESYLATE
     Indication: Product used for unknown indication
     Dosage: 70 MILLIGRAM
     Route: 065

REACTIONS (11)
  - Skin cancer [Not Recovered/Not Resolved]
  - Lung neoplasm malignant [Not Recovered/Not Resolved]
  - Dysphagia [Not Recovered/Not Resolved]
  - Aphonia [Recovering/Resolving]
  - Thermal burn [Recovering/Resolving]
  - Oropharyngeal pain [Unknown]
  - Cough [Unknown]
  - Cardiac disorder [Unknown]
  - Fatigue [Not Recovered/Not Resolved]
  - Product availability issue [Unknown]
  - Inappropriate schedule of product administration [Recovered/Resolved]
